FAERS Safety Report 6211295-6 (Version None)
Quarter: 2009Q2

REPORT INFORMATION
  Report Type: 
  Country: None (occurrence: None)
  Receive Date: 20090602
  Receipt Date: 20090527
  Transmission Date: 20091009
  Serious: Yes (Hospitalization, Other)
  Sender: FDA-Public Use
  Company Number: JP-JNJFOC-20090504651

PATIENT
  Age: 83 Year
  Sex: Male

DRUGS (7)
  1. ITRIZOLE [Suspect]
     Indication: ONYCHOMYCOSIS
     Route: 048
  2. LEVOFLOXACIN [Concomitant]
  3. PARIET [Concomitant]
     Route: 048
  4. MAGLAX [Concomitant]
     Route: 048
  5. IMIPRAMINE HYDROCHLORIDE [Concomitant]
     Route: 048
  6. WARFARIN POTASSIUM [Concomitant]
     Route: 048
  7. GASTER [Concomitant]
     Route: 048

REACTIONS (2)
  - EOSINOPHILIA [None]
  - PNEUMONIA [None]
